FAERS Safety Report 25291500 (Version 1)
Quarter: 2025Q2

REPORT INFORMATION
  Report Type: Spontaneous
  Country: US (occurrence: US)
  Receive Date: 20250510
  Receipt Date: 20250510
  Transmission Date: 20250716
  Serious: No
  Sender: SANOFI AVENTIS
  Company Number: US-SA-2025SA119270

PATIENT
  Sex: Female
  Weight: 86.36 kg

DRUGS (4)
  1. DUPIXENT [Suspect]
     Active Substance: DUPILUMAB
     Indication: Hepatitis C
     Dosage: 300 MG, QOW
     Route: 058
  2. HYDROCHLOROTHIAZIDE\IRBESARTAN [Concomitant]
     Active Substance: HYDROCHLOROTHIAZIDE\IRBESARTAN
  3. SYNTHROID [Concomitant]
     Active Substance: LEVOTHYROXINE SODIUM
  4. ELIQUIS [Concomitant]
     Active Substance: APIXABAN

REACTIONS (2)
  - Ankle fracture [Unknown]
  - Product use in unapproved indication [Unknown]
